FAERS Safety Report 5025092-0 (Version None)
Quarter: 2006Q2

REPORT INFORMATION
  Report Type: 
  Country: None (occurrence: None)
  Receive Date: 20060609
  Receipt Date: 20060609
  Transmission Date: 20061013
  Serious: Yes (Hospitalization)
  Sender: FDA-Public Use
  Company Number: None

PATIENT
  Age: 60 Year
  Sex: Female
  Weight: 77.5651 kg

DRUGS (8)
  1. CYTOXAN [Suspect]
     Indication: BREAST CANCER
     Dosage: PER BB-IND 10312
     Dates: start: 20060206
  2. VACCINE [Suspect]
  3. ALPHA-INTERFERON [Suspect]
  4. ALLEGRA [Concomitant]
  5. LIDODERM PATCH [Concomitant]
  6. COMPAZINE [Concomitant]
  7. METHADONE HCL [Concomitant]
  8. OXYCODONE HCL [Concomitant]

REACTIONS (2)
  - BACK PAIN [None]
  - SPINAL CORD COMPRESSION [None]
